FAERS Safety Report 11840609 (Version 1)
Quarter: 2015Q4

REPORT INFORMATION
  Report Type: Spontaneous
  Country: US (occurrence: None)
  Receive Date: 20151215
  Receipt Date: 20151215
  Transmission Date: 20160305
  Serious: No
  Sender: FDA-Public Use
  Company Number: None

PATIENT
  Age: 77 Year
  Sex: Female
  Weight: 90.72 kg

DRUGS (4)
  1. NITROFURANTOIN MONO 100MG CAP. [Suspect]
     Active Substance: NITROFURANTOIN
     Indication: CYSTITIS
     Dosage: 2 PILLS EVERY 12 HRS
     Route: 048
     Dates: start: 20151113, end: 20151120
  2. CARDIO ADVANTAGE [Concomitant]
  3. HERBAL NOS [Concomitant]
     Active Substance: HERBALS
  4. ASPIRIN. [Concomitant]
     Active Substance: ASPIRIN

REACTIONS (15)
  - Fatigue [None]
  - Flatulence [None]
  - Dyspnoea [None]
  - Chest pain [None]
  - Pruritus [None]
  - Cough [None]
  - Peripheral swelling [None]
  - Chills [None]
  - Chromaturia [None]
  - Paraesthesia [None]
  - Swelling face [None]
  - Hypoaesthesia [None]
  - Wheezing [None]
  - Headache [None]
  - Abdominal discomfort [None]

NARRATIVE: CASE EVENT DATE: 20151114
